FAERS Safety Report 12674597 (Version 1)
Quarter: 2016Q3

REPORT INFORMATION
  Report Type: Spontaneous
  Country: US (occurrence: US)
  Receive Date: 20160823
  Receipt Date: 20160823
  Transmission Date: 20161109
  Serious: No
  Sender: FDA-Public Use
  Company Number: US-FRI-1000084293

PATIENT
  Age: 31 Year
  Sex: Male

DRUGS (2)
  1. SAPHRIS [Suspect]
     Active Substance: ASENAPINE MALEATE
     Indication: BIPOLAR I DISORDER
  2. SAPHRIS [Suspect]
     Active Substance: ASENAPINE MALEATE
     Indication: BIPOLAR DISORDER
     Route: 048
     Dates: start: 201604, end: 20160424

REACTIONS (7)
  - Dyskinesia [Unknown]
  - Drug ineffective [Recovered/Resolved]
  - Insomnia [Unknown]
  - Panic attack [Not Recovered/Not Resolved]
  - Akathisia [Unknown]
  - Anxiety [Not Recovered/Not Resolved]
  - Tardive dyskinesia [Unknown]

NARRATIVE: CASE EVENT DATE: 201604
